FAERS Safety Report 8050550-4 (Version None)
Quarter: 2012Q1

REPORT INFORMATION
  Report Type: 
  Country: None (occurrence: None)
  Receive Date: 20120103
  Receipt Date: 20111222
  Transmission Date: 20120608
  Serious: Yes (Other)
  Sender: FDA-Public Use
  Company Number: 2011030610

PATIENT
  Age: 15 Year
  Sex: Female
  Weight: 63.9572 kg

DRUGS (24)
  1. HIZENTRA [Suspect]
  2. CLARITIN [Concomitant]
  3. MULTIVITAMIN (DAILY MULTIVITAMIN) [Concomitant]
  4. HIZENTRA [Suspect]
  5. FLUDROCORTISONE ACETATE [Concomitant]
  6. TYLENOL/CODEINE (GALENIC /PARACETAMOL/CODEINE) [Concomitant]
  7. HIZENTRA [Suspect]
     Indication: IMMUNODEFICIENCY COMMON VARIABLE
     Dosage: SEE IMAGE
     Route: 058
     Dates: start: 20110717
  8. HIZENTRA [Suspect]
     Indication: IMMUNODEFICIENCY COMMON VARIABLE
     Dosage: SEE IMAGE
     Route: 058
     Dates: start: 20111220
  9. HIZENTRA [Suspect]
     Indication: IMMUNODEFICIENCY COMMON VARIABLE
     Dosage: SEE IMAGE
     Route: 058
     Dates: start: 20111129
  10. HIZENTRA [Suspect]
     Indication: IMMUNODEFICIENCY COMMON VARIABLE
     Dosage: SEE IMAGE
     Route: 058
     Dates: start: 20111129
  11. HIZENTRA [Suspect]
     Indication: IMMUNODEFICIENCY COMMON VARIABLE
     Dosage: SEE IMAGE
     Route: 058
     Dates: start: 20111220
  12. DIFLUCAN [Concomitant]
  13. VALTREX [Concomitant]
  14. NEXIUM [Concomitant]
  15. LYRICA [Concomitant]
  16. GABAPENTIN [Concomitant]
  17. HIZENTRA [Suspect]
  18. CYMBALTA [Concomitant]
  19. ZOFRAN [Concomitant]
  20. ALBUTEROL [Concomitant]
  21. NAPROXEN [Concomitant]
  22. CONCERTA [Concomitant]
  23. AMITRIPTYLINE HCL [Concomitant]
  24. VITAMIN D [Concomitant]

REACTIONS (3)
  - URINARY TRACT INFECTION [None]
  - LOCALISED INFECTION [None]
  - EYE SWELLING [None]
